FAERS Safety Report 7568309-0 (Version None)
Quarter: 2011Q2

REPORT INFORMATION
  Report Type: 
  Country: None (occurrence: None)
  Receive Date: 20110623
  Receipt Date: 20110609
  Transmission Date: 20111010
  Serious: Yes (Death, Life-Threatening)
  Sender: FDA-Public Use
  Company Number: GB-JNJFOC-20100904879

PATIENT
  Age: 64 Year
  Sex: Female
  Weight: 49 kg

DRUGS (2)
  1. INFLIXIMAB, RECOMBINANT [Suspect]
     Indication: RHEUMATOID ARTHRITIS
     Dosage: LAST INFORMATION RECEIVED ON 01DEC2005, PATIENT WAS STILL ON INFLIXMAB AT THAT TIME
     Route: 042
     Dates: start: 20040429
  2. METHOTREXATE [Concomitant]
     Dates: start: 20040429

REACTIONS (2)
  - HYPERTENSIVE HEART DISEASE [None]
  - LEFT VENTRICULAR FAILURE [None]
